FAERS Safety Report 21410167 (Version 1)
Quarter: 2022Q4

REPORT INFORMATION
  Report Type: Spontaneous
  Country: US (occurrence: US)
  Receive Date: 20221005
  Receipt Date: 20221005
  Transmission Date: 20230112
  Serious: No
  Sender: FDA-Public Use
  Company Number: US-ALLERGAN-2222165US

PATIENT

DRUGS (7)
  1. UBRELVY [Suspect]
     Active Substance: UBROGEPANT
     Indication: Migraine
     Dosage: UNK
  2. NURTEC ODT [Suspect]
     Active Substance: RIMEGEPANT SULFATE
     Indication: Migraine
     Dosage: UNK
  3. IMITREX [Suspect]
     Active Substance: SUMATRIPTAN SUCCINATE
     Indication: Migraine
     Dosage: UNK
  4. AMERGE [Suspect]
     Active Substance: NARATRIPTAN HYDROCHLORIDE
     Indication: Migraine
     Dosage: UNK
  5. CAMBIA [Suspect]
     Active Substance: DICLOFENAC POTASSIUM
     Indication: Migraine
     Dosage: UNK
  6. ZOFRAN [Suspect]
     Active Substance: ONDANSETRON HYDROCHLORIDE
     Indication: Migraine
     Dosage: UNK
  7. MECLIZINE HYDROCHLORIDE [Suspect]
     Active Substance: MECLIZINE HYDROCHLORIDE
     Indication: Migraine
     Dosage: UNK

REACTIONS (1)
  - Drug ineffective [Unknown]
